FAERS Safety Report 9159395 (Version 1)
Quarter: 2013Q1

REPORT INFORMATION
  Report Type: Spontaneous
  Country: BR (occurrence: BR)
  Receive Date: 20130313
  Receipt Date: 20130313
  Transmission Date: 20140127
  Serious: Yes (Other)
  Sender: FDA-Public Use
  Company Number: PHHY2013BR024211

PATIENT
  Age: 81 Year
  Sex: Male

DRUGS (2)
  1. EXELON PATCH [Suspect]
     Indication: DEMENTIA ALZHEIMER^S TYPE
     Dosage: 4.6 MG/5CM2
     Route: 062
     Dates: start: 2011
  2. EXELON PATCH [Suspect]
     Dosage: 9.5 MG/10CM2
     Route: 062

REACTIONS (1)
  - Cataract [Recovered/Resolved]
